FAERS Safety Report 23864436 (Version 2)
Quarter: 2024Q2

REPORT INFORMATION
  Report Type: Spontaneous
  Country: US (occurrence: None)
  Receive Date: 20240516
  Receipt Date: 20240612
  Transmission Date: 20240716
  Serious: No
  Sender: FDA-Public Use
  Company Number: 2024A107807

PATIENT
  Sex: Female

DRUGS (3)
  1. FARXIGA [Suspect]
     Active Substance: DAPAGLIFLOZIN PROPANEDIOL
     Route: 048
     Dates: start: 20240313
  2. ROSUVASTATIN [Suspect]
     Active Substance: ROSUVASTATIN
     Route: 048
     Dates: start: 202402
  3. ROSUVASTATIN [Suspect]
     Active Substance: ROSUVASTATIN
     Route: 048

REACTIONS (11)
  - Glycosylated haemoglobin increased [Unknown]
  - Low density lipoprotein [Unknown]
  - Myalgia [Recovered/Resolved]
  - Crying [Recovered/Resolved]
  - Limb discomfort [Recovered/Resolved]
  - Thyroid disorder [Unknown]
  - Intentional product misuse [Unknown]
  - Blood creatine increased [Unknown]
  - Glomerular filtration rate decreased [Unknown]
  - Irritability [Unknown]
  - Urine protein/creatinine ratio abnormal [Unknown]
